FAERS Safety Report 7726012-8 (Version None)
Quarter: 2011Q3

REPORT INFORMATION
  Report Type: 
  Country: None (occurrence: None)
  Receive Date: 20110902
  Receipt Date: 20110824
  Transmission Date: 20111222
  Serious: Yes (Hospitalization)
  Sender: FDA-Public Use
  Company Number: US-ROCHE-799068

PATIENT
  Sex: Male
  Weight: 74.8 kg

DRUGS (5)
  1. PEGINTERFERON ALFA-2A [Suspect]
     Route: 065
     Dates: start: 20110214, end: 20110725
  2. RIBAVIRIN [Suspect]
     Route: 048
     Dates: start: 20110214, end: 20110731
  3. PRILOSEC [Concomitant]
  4. VX-950 [Suspect]
     Route: 065
     Dates: start: 20110214, end: 20110508
  5. BIOTIN [Concomitant]

REACTIONS (3)
  - NAUSEA [None]
  - VOMITING [None]
  - BRADYCARDIA [None]
